FAERS Safety Report 4286709-1 (Version None)
Quarter: 2004Q1

REPORT INFORMATION
  Report Type: 
  Country: None (occurrence: None)
  Receive Date: 20040204
  Receipt Date: 20040121
  Transmission Date: 20041129
  Serious: Yes (Hospitalization)
  Sender: FDA-Public Use
  Company Number: 2004-DE-00348DE (0)

PATIENT
  Age: 69 Year
  Sex: Male

DRUGS (4)
  1. MICARDIS [Suspect]
     Indication: HYPERTENSION
     Dosage: 20 MG (20 MG, 1-0-0) PO
     Route: 048
     Dates: start: 20020101, end: 20031014
  2. UROXATRAL (ALFUZOSIN HYDROCHLORIDE) (TAD) [Suspect]
     Indication: BENIGN PROSTATIC HYPERPLASIA
     Dosage: 10 MG (NR, 1 IN 1 D) PO
     Route: 048
     Dates: start: 20031014, end: 20031014
  3. ASS 100 (TA) [Concomitant]
  4. PROSCAR (TAF) [Concomitant]

REACTIONS (5)
  - BLOOD PRESSURE DECREASED [None]
  - BRADYCARDIA [None]
  - DRUG INTERACTION [None]
  - HAEMOGLOBIN DECREASED [None]
  - SYNCOPE [None]
